FAERS Safety Report 4474094-1 (Version None)
Quarter: 2004Q4

REPORT INFORMATION
  Report Type: 
  Country: None (occurrence: None)
  Receive Date: 20041008
  Receipt Date: 20040930
  Transmission Date: 20050328
  Serious: Yes (Hospitalization)
  Sender: FDA-Public Use
  Company Number: 163-20785-04080040

PATIENT
  Age: 67 Year
  Sex: Male

DRUGS (2)
  1. THALOMID [Suspect]
     Indication: MULTIPLE MYELOMA
     Dosage: 200 MG, DAILY, ORAL
     Route: 048
     Dates: start: 20031003
  2. CELEBREX [Concomitant]

REACTIONS (3)
  - ANEURYSM RUPTURED [None]
  - HEPATOSPLENOMEGALY [None]
  - SUBARACHNOID HAEMORRHAGE [None]
